FAERS Safety Report 12493368 (Version 3)
Quarter: 2016Q3

REPORT INFORMATION
  Report Type: Spontaneous
  Country: US (occurrence: US)
  Receive Date: 20160623
  Receipt Date: 20160812
  Transmission Date: 20161109
  Serious: Yes (Hospitalization, Other)
  Sender: FDA-Public Use
  Company Number: US-009507513-1606USA006424

PATIENT
  Age: 47 Year
  Sex: Male

DRUGS (13)
  1. DEXAMETHASONE. [Suspect]
     Active Substance: DEXAMETHASONE
     Dosage: 40 MG, QW
     Route: 048
     Dates: start: 20140707
  2. BACTRIM DS [Concomitant]
     Active Substance: SULFAMETHOXAZOLE\TRIMETHOPRIM
     Indication: ANTIFUNGAL PROPHYLAXIS
     Dosage: 1 TABLET ONCE A DAY, ON MONDAY, WEDNESDAY AND FRIDAY
  3. PROGRAF [Concomitant]
     Active Substance: TACROLIMUS\TACROLIMUS ANHYDROUS
     Indication: COMPLICATIONS OF BONE MARROW TRANSPLANT
     Dosage: 2 MG, QAM AND 2MG QPM
     Route: 048
  4. LENALIDOMIDE [Suspect]
     Active Substance: LENALIDOMIDE
     Dosage: 25 MG, QD IN 21/28-DAY SCHEDULE
     Dates: start: 20140707
  5. MAGNESIUM (UNSPECIFIED) [Concomitant]
     Active Substance: MAGNESIUM
     Indication: ROUTINE HEALTH MAINTENANCE
     Dosage: 266 MG, TID FOR 90 DAYS
     Route: 048
  6. SODIUM CHLORIDE. [Concomitant]
     Active Substance: SODIUM CHLORIDE
     Indication: ELECTROLYTE IMBALANCE
     Dosage: 500 ML, QOD
     Route: 042
  7. ACTIGALL [Concomitant]
     Active Substance: URSODIOL
     Indication: PROPHYLAXIS
     Dosage: 300 MG, TID
     Route: 048
  8. PEPCID RPD [Concomitant]
     Active Substance: FAMOTIDINE
     Indication: PROPHYLAXIS
     Dosage: 20 MG, BID
     Route: 048
  9. ZITHROMAX [Concomitant]
     Active Substance: AZITHROMYCIN DIHYDRATE
     Dosage: 250 MG, 2 TIMES A WEEK
  10. VALTREX [Concomitant]
     Active Substance: VALACYCLOVIR HYDROCHLORIDE
     Indication: ANTIVIRAL PROPHYLAXIS
     Dosage: 500 MG, QD
     Route: 048
  11. CARDIZEM [Concomitant]
     Active Substance: DILTIAZEM HYDROCHLORIDE
     Indication: HYPERTENSION
     Dosage: 90 MG, QD, FOR 90 DAYS
     Route: 048
  12. DIFLUCAN [Concomitant]
     Active Substance: FLUCONAZOLE
     Indication: PROPHYLAXIS
     Dosage: 400 MG, QD
     Route: 048
  13. FOLVITE [Concomitant]
     Active Substance: FOLIC ACID
     Indication: ROUTINE HEALTH MAINTENANCE
     Dosage: 2 MG, QD
     Route: 048

REACTIONS (20)
  - Asthenia [Recovering/Resolving]
  - Seasonal allergy [Unknown]
  - Bone marrow failure [Recovering/Resolving]
  - Cytomegalovirus viraemia [Recovered/Resolved]
  - Mucosal inflammation [Unknown]
  - Fatigue [Recovering/Resolving]
  - Cerumen impaction [Recovering/Resolving]
  - Blood chloride increased [Unknown]
  - Stem cell transplant [Unknown]
  - Renal failure [Unknown]
  - Gastrointestinal toxicity [Unknown]
  - Lymphocyte count decreased [Unknown]
  - Aspartate aminotransferase decreased [Unknown]
  - Pigmentation disorder [Unknown]
  - Red blood cell count decreased [Unknown]
  - Diarrhoea [Unknown]
  - Haematocrit decreased [Unknown]
  - Blood magnesium decreased [Unknown]
  - Monocyte percentage increased [Unknown]
  - Alanine aminotransferase decreased [Unknown]

NARRATIVE: CASE EVENT DATE: 201604
